FAERS Safety Report 16006019 (Version 2)
Quarter: 2021Q4

REPORT INFORMATION
  Report Type: Spontaneous
  Country: US (occurrence: US)
  Receive Date: 20190226
  Receipt Date: 20211101
  Transmission Date: 20220303
  Serious: Yes (Other)
  Sender: FDA-Public Use
  Company Number: PHEH2019US008629

PATIENT
  Sex: Female

DRUGS (1)
  1. TASIGNA [Suspect]
     Active Substance: NILOTINIB
     Indication: Chronic myeloid leukaemia
     Dosage: 400 MG, BID
     Route: 048
     Dates: start: 20080401, end: 201805

REACTIONS (21)
  - Glaucoma [Unknown]
  - Cerebral haemorrhage [Unknown]
  - Syncope [Unknown]
  - Pneumonia [Unknown]
  - Bundle branch block right [Unknown]
  - Breast hyperplasia [Unknown]
  - Essential hypertension [Unknown]
  - Osteopenia [Unknown]
  - Injury [Unknown]
  - Alopecia [Unknown]
  - Muscular weakness [Unknown]
  - Muscle spasms [Unknown]
  - Myalgia [Unknown]
  - Arthritis [Unknown]
  - Cardiac murmur [Unknown]
  - Blood cholesterol increased [Unknown]
  - Intermittent claudication [Unknown]
  - Arteriosclerosis [Unknown]
  - Anxiety [Unknown]
  - Emotional distress [Unknown]
  - Pain [Unknown]
